FAERS Safety Report 21588703 (Version 1)
Quarter: 2022Q4

REPORT INFORMATION
  Report Type: Other
  Country: GB (occurrence: GB)
  Receive Date: 20221114
  Receipt Date: 20221114
  Transmission Date: 20230113
  Serious: Yes (Other)
  Sender: FDA-Public Use
  Company Number: GB-MHRA-MED-202210310922074340-BZLGM

PATIENT
  Age: 8 Month
  Sex: Female
  Weight: 11 kg

DRUGS (1)
  1. SERTRALINE [Suspect]
     Active Substance: SERTRALINE HYDROCHLORIDE
     Indication: Adverse drug reaction
     Dosage: 25 MILLIGRAM, QD (25MG ONCE PER DAY)
     Route: 065
     Dates: start: 202209, end: 202210

REACTIONS (3)
  - Rash [Recovering/Resolving]
  - Acne [Recovering/Resolving]
  - Maternal exposure during breast feeding [Unknown]

NARRATIVE: CASE EVENT DATE: 20220901
